FAERS Safety Report 4659040-X (Version None)
Quarter: 2005Q2

REPORT INFORMATION
  Report Type: 
  Country: None (occurrence: None)
  Receive Date: 20050509
  Receipt Date: 20050427
  Transmission Date: 20051028
  Serious: Yes (Other)
  Sender: FDA-Public Use
  Company Number: D0046164A

PATIENT
  Age: 25 Year
  Sex: Female

DRUGS (1)
  1. ATMADISC            MULTI DOSE (FLUTICASONE+SALMETEROL) [Suspect]
     Indication: ASTHMA
     Dosage: 300 MCG/TWICE PER DAY/INHALED
     Route: 055
     Dates: start: 20020101

REACTIONS (4)
  - ABORTION SPONTANEOUS [None]
  - DRUG EXPOSURE DURING PREGNANCY [None]
  - PREGNANCY [None]
  - TRISOMY 21 [None]
